FAERS Safety Report 9822336 (Version 1)
Quarter: 2014Q1

REPORT INFORMATION
  Report Type: Spontaneous
  Country: US (occurrence: US)
  Receive Date: 20140116
  Receipt Date: 20140116
  Transmission Date: 20141002
  Serious: Yes (Hospitalization, Other)
  Sender: FDA-Public Use
  Company Number: US-SA-2014SA003999

PATIENT
  Sex: Female

DRUGS (2)
  1. LANTUS [Suspect]
     Route: 065
  2. METFORMIN [Concomitant]

REACTIONS (6)
  - Cardiac disorder [Unknown]
  - Confusional state [Unknown]
  - Malaise [Unknown]
  - Swelling [Unknown]
  - Arthropathy [Unknown]
  - Musculoskeletal pain [Unknown]
